FAERS Safety Report 9168733 (Version 1)
Quarter: 2013Q1

REPORT INFORMATION
  Report Type: Spontaneous
  Country: US (occurrence: US)
  Receive Date: 20130318
  Receipt Date: 20130318
  Transmission Date: 20140127
  Serious: No
  Sender: FDA-Public Use
  Company Number: US-BAYER-2013-029959

PATIENT
  Age: 54 Year
  Sex: Female

DRUGS (2)
  1. ALEVE LIQUID GELS [Suspect]
     Indication: HEADACHE
     Dosage: 1 DF, QD
     Route: 048
     Dates: end: 20130304
  2. ALEVE CAPLET/TABLET,MIDOL EXTENDED RELIEF CAPLET [Suspect]
     Dosage: UNK

REACTIONS (3)
  - Drug ineffective [Not Recovered/Not Resolved]
  - Drug ineffective [None]
  - Headache [None]
